FAERS Safety Report 24879670 (Version 2)
Quarter: 2025Q1

REPORT INFORMATION
  Report Type: Spontaneous
  Country: US (occurrence: US)
  Receive Date: 20250123
  Receipt Date: 20250207
  Transmission Date: 20250409
  Serious: Yes (Other)
  Sender: TEVA
  Company Number: US-TEVA-VS-3287729

PATIENT
  Age: 52 Year
  Sex: Female

DRUGS (4)
  1. DOXORUBICIN [Suspect]
     Active Substance: DOXORUBICIN
     Indication: Malignant fibrous histiocytoma
     Route: 065
  2. IFOSFAMIDE [Suspect]
     Active Substance: IFOSFAMIDE
     Indication: Malignant fibrous histiocytoma
     Route: 065
  3. DACARBAZINE [Concomitant]
     Active Substance: DACARBAZINE
     Indication: Malignant fibrous histiocytoma
     Route: 065
  4. DEXRAZOXANE [Suspect]
     Active Substance: DEXRAZOXANE
     Indication: Prophylaxis
     Route: 065

REACTIONS (7)
  - Affect lability [Unknown]
  - Agitation [Unknown]
  - Confusional state [Unknown]
  - Drug ineffective [Unknown]
  - Hallucination [Unknown]
  - Cardiomyopathy [Recovered/Resolved]
  - Delirium [Unknown]
